FAERS Safety Report 6690670-X (Version None)
Quarter: 2010Q2

REPORT INFORMATION
  Report Type: 
  Country: None (occurrence: None)
  Receive Date: 20100421
  Receipt Date: 20090611
  Transmission Date: 20101027
  Serious: No
  Sender: FDA-Public Use
  Company Number: US-BRISTOL-MYERS SQUIBB COMPANY-14651301

PATIENT
  Age: 70 Year
  Sex: Female
  Weight: 4 kg

DRUGS (6)
  1. HYDREA [Suspect]
     Indication: ESSENTIAL THROMBOCYTHAEMIA
     Dosage: REDUCED TO 400MG AND THAN TO 300MG
     Route: 048
     Dates: start: 20090428
  2. SINGULAIR [Concomitant]
  3. ALLEGRA [Concomitant]
  4. ALPRAZOLAM [Concomitant]
  5. AMBIEN [Concomitant]
  6. CANDID B [Concomitant]

REACTIONS (1)
  - BLOOD POTASSIUM INCREASED [None]
